FAERS Safety Report 8800171 (Version 1)
Quarter: 2012Q4

REPORT INFORMATION
  Report Type: Spontaneous
  Country: US (occurrence: None)
  Receive Date: 20120918
  Receipt Date: 20120918
  Transmission Date: 20130627
  Serious: No
  Sender: FDA-Public Use
  Company Number: None

PATIENT

DRUGS (1)
  1. INVEGA SUSTENNA [Suspect]

REACTIONS (19)
  - Feeling abnormal [None]
  - Movement disorder [None]
  - Gait disturbance [None]
  - Dysgraphia [None]
  - Dysphagia [None]
  - Reading disorder [None]
  - Balance disorder [None]
  - Dysuria [None]
  - Speech disorder [None]
  - Thirst [None]
  - Confusional state [None]
  - Thinking abnormal [None]
  - Restlessness [None]
  - Salivary hypersecretion [None]
  - Constipation [None]
  - Faecaloma [None]
  - Asthenia [None]
  - Somnolence [None]
  - Activities of daily living impaired [None]
